FAERS Safety Report 9868565 (Version 4)
Quarter: 2014Q2

REPORT INFORMATION
  Report Type: Spontaneous
  Country: US (occurrence: US)
  Receive Date: 20140204
  Receipt Date: 20140424
  Transmission Date: 20141212
  Serious: No
  Sender: FDA-Public Use
  Company Number: US-PFIZER INC-2014028310

PATIENT
  Age: 84 Year
  Sex: Female
  Weight: 53.52 kg

DRUGS (6)
  1. SUTENT [Suspect]
     Dosage: 25 MG, DAILY, CONTINUOUSLY WITHOUT BREAKS
  2. LISINOPRIL [Concomitant]
     Indication: HYPERTENSION
     Dosage: UNK
  3. NAPROXEN [Concomitant]
     Dosage: UNK
  4. COD LIVER OIL [Concomitant]
     Dosage: UNK
  5. ASPIRIN [Concomitant]
     Dosage: 81 MG, UNK
  6. VITAMIN C [Concomitant]
     Dosage: UNK

REACTIONS (10)
  - Hot flush [Unknown]
  - Hyperhidrosis [Unknown]
  - Pruritus [Unknown]
  - Hypertension [Unknown]
  - Epistaxis [Unknown]
  - Dizziness [Unknown]
  - Feeling abnormal [Unknown]
  - Sinusitis [Recovering/Resolving]
  - Rash [Not Recovered/Not Resolved]
  - Peripheral swelling [Not Recovered/Not Resolved]
